FAERS Safety Report 9078628 (Version 3)
Quarter: 2013Q2

REPORT INFORMATION
  Report Type: Report from Study
  Country: CA (occurrence: CA)
  Receive Date: 20130130
  Receipt Date: 20130503
  Transmission Date: 20140414
  Serious: Yes (Hospitalization, Other)
  Sender: FDA-Public Use
  Company Number: CA-JNJFOC-20130111431

PATIENT
  Age: 38 Year
  Sex: Female
  Weight: 51.3 kg

DRUGS (14)
  1. REMICADE [Suspect]
     Indication: RHEUMATOID ARTHRITIS
     Dosage: INFUSION 82
     Route: 042
     Dates: end: 20121105
  2. REMICADE [Suspect]
     Indication: RHEUMATOID ARTHRITIS
     Route: 042
     Dates: start: 20120412
  3. REMICADE [Suspect]
     Indication: RHEUMATOID ARTHRITIS
     Route: 042
     Dates: start: 20021004
  4. PARIET [Concomitant]
     Route: 065
  5. VITAMINS NOS [Concomitant]
     Route: 065
  6. DULCOLAX [Concomitant]
     Route: 065
  7. METHOTREXATE [Concomitant]
     Indication: RHEUMATOID ARTHRITIS
     Route: 048
  8. M-ESLON [Concomitant]
     Indication: PAIN
     Route: 048
  9. M-ESLON [Concomitant]
     Indication: PAIN
     Route: 048
  10. M-ESLON [Concomitant]
     Indication: RHEUMATOID ARTHRITIS
     Route: 048
  11. M-ESLON [Concomitant]
     Indication: RHEUMATOID ARTHRITIS
     Route: 048
  12. CELEBREX [Concomitant]
     Indication: RHEUMATOID ARTHRITIS
     Route: 048
  13. SYNTHROID [Concomitant]
     Indication: HYPOTHYROIDISM
     Route: 048
  14. DOCUSATE SODIUM [Concomitant]
     Indication: ABNORMAL FAECES
     Route: 048

REACTIONS (5)
  - Grand mal convulsion [Recovered/Resolved]
  - Extremity necrosis [Recovered/Resolved]
  - Pain in extremity [Recovered/Resolved]
  - Angiopathy [Unknown]
  - Nervous system disorder [Unknown]
